FAERS Safety Report 18112567 (Version 1)
Quarter: 2020Q3

REPORT INFORMATION
  Report Type: Spontaneous
  Country: US (occurrence: US)
  Receive Date: 20200804
  Receipt Date: 20200804
  Transmission Date: 20201103
  Serious: No
  Sender: FDA-Public Use
  Company Number: None

PATIENT
  Age: 60 Year
  Sex: Female
  Weight: 65.25 kg

DRUGS (3)
  1. VITAMIN C [Concomitant]
     Active Substance: ASCORBIC ACID
  2. VITAMIN D3 [Concomitant]
     Active Substance: CHOLECALCIFEROL
  3. ASSURED HAND SANITIZER WITH ALOE VERA [Suspect]
     Active Substance: ALCOHOL
     Indication: COVID-19 PROPHYLAXIS
     Route: 061
     Dates: start: 20200318, end: 20200613

REACTIONS (5)
  - Hypersensitivity [None]
  - Hypoaesthesia [None]
  - Bone pain [None]
  - Application site burn [None]
  - Paraesthesia [None]

NARRATIVE: CASE EVENT DATE: 20200501
